FAERS Safety Report 21322152 (Version 1)
Quarter: 2022Q3

REPORT INFORMATION
  Report Type: Spontaneous
  Country: US (occurrence: None)
  Receive Date: 20220910
  Receipt Date: 20220910
  Transmission Date: 20221027
  Serious: No
  Sender: FDA-Public Use
  Company Number: None

PATIENT
  Age: 53 Year
  Sex: Female
  Weight: 157.5 kg

DRUGS (2)
  1. PAXLOVID [Suspect]
     Active Substance: NIRMATRELVIR\RITONAVIR
     Indication: COVID-19
     Dosage: OTHER QUANTITY : 30 TABLET(S);?FREQUENCY : TWICE A DAY;?
     Route: 048
     Dates: start: 20220906, end: 20220910
  2. PAXLOVID [Suspect]
     Active Substance: NIRMATRELVIR\RITONAVIR
     Indication: Upper respiratory tract infection

REACTIONS (7)
  - Drug hypersensitivity [None]
  - Throat tightness [None]
  - Pharyngeal swelling [None]
  - Throat irritation [None]
  - Odynophagia [None]
  - Dysphonia [None]
  - Illness [None]

NARRATIVE: CASE EVENT DATE: 20220906
